FAERS Safety Report 14404016 (Version 1)
Quarter: 2018Q1

REPORT INFORMATION
  Report Type: Spontaneous
  Country: JP (occurrence: JP)
  Receive Date: 20180117
  Receipt Date: 20180117
  Transmission Date: 20180509
  Serious: Yes (Death, Hospitalization)
  Sender: FDA-Public Use
  Company Number: JP-MYLANLABS-2018M1002839

PATIENT
  Age: 69 Year
  Sex: Male
  Weight: 37 kg

DRUGS (1)
  1. PREDNISOLONE. [Suspect]
     Active Substance: PREDNISOLONE
     Indication: RHEUMATOID ARTHRITIS
     Dosage: 20 MG, QD
     Route: 065
     Dates: start: 201209

REACTIONS (3)
  - Disseminated intravascular coagulation [Fatal]
  - Lung infection [Fatal]
  - Nocardiosis [Fatal]
